FAERS Safety Report 4897624-4 (Version None)
Quarter: 2006Q1

REPORT INFORMATION
  Report Type: 
  Country: None (occurrence: None)
  Receive Date: 20060201
  Receipt Date: 20060124
  Transmission Date: 20060701
  Serious: Yes (Hospitalization)
  Sender: FDA-Public Use
  Company Number: 2006UW01262

PATIENT
  Age: 37 Year
  Sex: Male
  Weight: 99.8 kg

DRUGS (3)
  1. SEROQUEL [Suspect]
     Indication: SLEEP DISORDER
     Route: 048
     Dates: start: 20020101
  2. ZOLOFT [Concomitant]
  3. DIAZEPAM [Concomitant]

REACTIONS (7)
  - ABDOMINAL DISTENSION [None]
  - ABDOMINAL PAIN [None]
  - DIARRHOEA [None]
  - DRUG DEPENDENCE [None]
  - PANCREATIC CYST [None]
  - PANCREATITIS [None]
  - STAPHYLOCOCCAL INFECTION [None]
